FAERS Safety Report 5726001-9 (Version None)
Quarter: 2008Q2

REPORT INFORMATION
  Report Type: 
  Country: None (occurrence: None)
  Receive Date: 20080502
  Receipt Date: 20080424
  Transmission Date: 20081010
  Serious: Yes (Other)
  Sender: FDA-Public Use
  Company Number: CA-JNJFOC-20080200433

PATIENT
  Age: 24 Year
  Sex: Male
  Weight: 90 kg

DRUGS (9)
  1. REMICADE [Suspect]
     Dosage: 7TH INFUSION
     Route: 042
  2. REMICADE [Suspect]
     Route: 042
  3. REMICADE [Suspect]
     Route: 042
  4. REMICADE [Suspect]
     Route: 042
  5. REMICADE [Suspect]
     Route: 042
  6. REMICADE [Suspect]
     Route: 042
  7. REMICADE [Suspect]
     Indication: COLITIS ULCERATIVE
     Route: 042
  8. BENADRYL [Concomitant]
     Indication: DRUG USE FOR UNKNOWN INDICATION
  9. IMURAN [Concomitant]

REACTIONS (7)
  - ASTHENIA [None]
  - BLOOD PRESSURE DECREASED [None]
  - DEPRESSED LEVEL OF CONSCIOUSNESS [None]
  - INFUSION RELATED REACTION [None]
  - NAUSEA [None]
  - PALLOR [None]
  - PRURITUS [None]
